FAERS Safety Report 12128524 (Version 2)
Quarter: 2017Q1

REPORT INFORMATION
  Report Type: Other
  Country: US (occurrence: US)
  Receive Date: 20160229
  Receipt Date: 20170212
  Transmission Date: 20170428
  Serious: No
  Sender: FDA-Public Use
  Company Number: US-ACORDA-ACO_119161_2015

PATIENT
  Age: 55 Year
  Sex: Female

DRUGS (3)
  1. AMPYRA [Suspect]
     Active Substance: DALFAMPRIDINE
     Indication: MULTIPLE SCLEROSIS
     Dosage: 10 MG, Q 12 HRS
     Route: 048
     Dates: start: 201503
  2. COPAXONE [Suspect]
     Active Substance: GLATIRAMER ACETATE
     Indication: PRODUCT USED FOR UNKNOWN INDICATION
     Route: 065
  3. AMPYRA [Suspect]
     Active Substance: DALFAMPRIDINE
     Dosage: UNK

REACTIONS (10)
  - Abdominal discomfort [Not Recovered/Not Resolved]
  - Decreased interest [Unknown]
  - Disturbance in attention [Not Recovered/Not Resolved]
  - Muscular weakness [Not Recovered/Not Resolved]
  - Injection site pain [Unknown]
  - Drug ineffective [Not Recovered/Not Resolved]
  - Eye irritation [Not Recovered/Not Resolved]
  - Back pain [Not Recovered/Not Resolved]
  - Vision blurred [Not Recovered/Not Resolved]
  - Depression [Not Recovered/Not Resolved]

NARRATIVE: CASE EVENT DATE: 20151103
